FAERS Safety Report 8380107-7 (Version None)
Quarter: 2012Q2

REPORT INFORMATION
  Report Type: 
  Country: None (occurrence: None)
  Receive Date: 20120523
  Receipt Date: 20120514
  Transmission Date: 20120825
  Serious: Yes (Other)
  Sender: FDA-Public Use
  Company Number: US-ASTRAZENECA-2012SE31005

PATIENT
  Age: 78 Year
  Sex: Male
  Weight: 76.2 kg

DRUGS (3)
  1. NEXIUM [Suspect]
     Dosage: TWO TIMES A DAY
     Route: 048
     Dates: start: 20110401
  2. NEXIUM [Suspect]
     Indication: GASTROOESOPHAGEAL REFLUX DISEASE
     Dosage: DAILY
     Route: 048
  3. LIPITOR [Concomitant]
     Indication: BLOOD CHOLESTEROL INCREASED

REACTIONS (2)
  - OROPHARYNGEAL CANCER STAGE UNSPECIFIED [None]
  - DRUG PRESCRIBING ERROR [None]
